FAERS Safety Report 8500993-7 (Version None)
Quarter: 2012Q3

REPORT INFORMATION
  Report Type: 
  Country: None (occurrence: None)
  Receive Date: 20120710
  Receipt Date: 20120705
  Transmission Date: 20120928
  Serious: Yes (Other)
  Sender: FDA-Public Use
  Company Number: TH-ABBOTT-12P-155-0953458-00

PATIENT
  Age: 44 Year
  Sex: Female

DRUGS (6)
  1. NORVIR [Suspect]
     Indication: ANTIVIRAL TREATMENT
     Dosage: 150 MG DAILY; TAKEN AT CONCEPTION
     Route: 048
     Dates: start: 20101103, end: 20120312
  2. TRUVADA [Suspect]
     Indication: ANTIVIRAL TREATMENT
     Dosage: 1 TABS/CAPS DAILY; TAKEN AT CONCEPTION
     Route: 048
     Dates: start: 20101103, end: 20120312
  3. KALETRA [Suspect]
     Indication: ANTIVIRAL TREATMENT
     Dosage: NOT TAKEN AT CONCEPTION
     Route: 048
     Dates: start: 20120314
  4. VIREAD [Suspect]
     Indication: ANTIVIRAL TREATMENT
     Dosage: NOT TAKEN AT CONCEPTION
     Route: 048
     Dates: start: 20120314
  5. EPIVIR [Suspect]
     Indication: ANTIVIRAL TREATMENT
     Dosage: NOT TAKEN AT CONCEPTION
     Route: 048
     Dates: start: 20120314
  6. REYATAZ [Suspect]
     Indication: ANTIVIRAL TREATMENT
     Dosage: 300 MG DAILY; TAKEN AT CONCEPTION
     Route: 048
     Dates: start: 20101103, end: 20120312

REACTIONS (1)
  - ABORTION SPONTANEOUS [None]
